FAERS Safety Report 15759952 (Version 1)
Quarter: 2018Q4

REPORT INFORMATION
  Report Type: Spontaneous
  Country: CA (occurrence: CA)
  Receive Date: 20181226
  Receipt Date: 20181226
  Transmission Date: 20190205
  Serious: Yes (Other)
  Sender: FDA-Public Use
  Company Number: CA-TEVA-2018-CA-991447

PATIENT
  Age: 21 Year
  Sex: Male

DRUGS (1)
  1. METRONIDAZOLE. [Suspect]
     Active Substance: METRONIDAZOLE
     Indication: GASTRIC INFECTION
     Route: 065

REACTIONS (6)
  - Gait disturbance [Unknown]
  - Nausea [Unknown]
  - Hallucination [Unknown]
  - Tremor [Unknown]
  - Head discomfort [Unknown]
  - Dizziness [Unknown]
